FAERS Safety Report 15945274 (Version 2)
Quarter: 2019Q2

REPORT INFORMATION
  Report Type: Spontaneous
  Country: US (occurrence: US)
  Receive Date: 20190211
  Receipt Date: 20190510
  Transmission Date: 20190711
  Serious: No
  Sender: FDA-Public Use
  Company Number: US-BRISTOL-MYERS SQUIBB COMPANY-BMS-2019-011432

PATIENT
  Age: 73 Year
  Sex: Male
  Weight: 93.89 kg

DRUGS (1)
  1. OPDIVO [Suspect]
     Active Substance: NIVOLUMAB
     Indication: METASTATIC CARCINOMA OF THE BLADDER
     Dosage: UNK UNK, QMO
     Route: 042
     Dates: start: 20190128

REACTIONS (4)
  - Product use in unapproved indication [Unknown]
  - Nausea [Unknown]
  - Malaise [Unknown]
  - Fatigue [Unknown]

NARRATIVE: CASE EVENT DATE: 20190129
